FAERS Safety Report 18242827 (Version 2)
Quarter: 2020Q3

REPORT INFORMATION
  Report Type: Spontaneous
  Country: CN (occurrence: CN)
  Receive Date: 20200908
  Receipt Date: 20200911
  Transmission Date: 20201103
  Serious: Yes (Other)
  Sender: FDA-Public Use
  Company Number: CN-ASTRAZENECA-2020SF14251

PATIENT
  Age: 63 Year
  Sex: Female

DRUGS (3)
  1. IMFINZI [Suspect]
     Active Substance: DURVALUMAB
     Dosage: 500MG/10ML, THE PATIENT HAD BEEN TREATED FOR 2 PERIODS. THE LAST DOSE WAS 500MG/PERIOD.
     Route: 042
     Dates: start: 20200319, end: 20200401
  2. IMFINZI [Suspect]
     Active Substance: DURVALUMAB
     Dosage: 500MG/10ML, DOSE AND FREQUENCY UNKNOWN
     Route: 042
  3. IMFINZI [Suspect]
     Active Substance: DURVALUMAB
     Dosage: ONCE EVERY TWO WEEKS, WITH 18000 RMB EACH TIME
     Route: 042

REACTIONS (2)
  - Tumour marker increased [Recovering/Resolving]
  - Lymphadenopathy [Recovering/Resolving]

NARRATIVE: CASE EVENT DATE: 202006
